FAERS Safety Report 7248111-X (Version None)
Quarter: 2011Q1

REPORT INFORMATION
  Report Type: 
  Country: None (occurrence: None)
  Receive Date: 20110127
  Receipt Date: 20110121
  Transmission Date: 20110831
  Serious: Yes (Hospitalization)
  Sender: FDA-Public Use
  Company Number: US-AMGEN-USASP2010002862

PATIENT
  Age: 76 Year
  Sex: Female
  Weight: 77.551 kg

DRUGS (10)
  1. METHOTREXATE [Concomitant]
     Dosage: 12.5 MG, QWK
  2. PREDNISONE [Concomitant]
     Dosage: 5 MG, UNK
  3. MAGNESIUM [Concomitant]
     Dosage: UNK UNK, QD
  4. ENBREL [Suspect]
     Indication: RHEUMATOID ARTHRITIS
     Dates: start: 20070501
  5. LIPITOR [Concomitant]
     Dosage: 40 MG, QD
  6. QUINAPRIL [Concomitant]
     Dosage: 10 MG, QD
  7. FOLIC ACID [Concomitant]
     Dosage: UNK UNK, QD
  8. CALCIUM D                          /00944201/ [Concomitant]
     Dosage: 2 UNK, QD
  9. VICODIN [Concomitant]
     Dosage: 5 MG, PRN
  10. BONIVA [Concomitant]

REACTIONS (3)
  - ARTHRALGIA [None]
  - MUSCULOSKELETAL STIFFNESS [None]
  - ATRIAL FIBRILLATION [None]
